FAERS Safety Report 11828233 (Version 6)
Quarter: 2016Q1

REPORT INFORMATION
  Report Type: Spontaneous
  Country: FR (occurrence: FR)
  Receive Date: 20151211
  Receipt Date: 20160210
  Transmission Date: 20160525
  Serious: Yes (Hospitalization, Other)
  Sender: FDA-Public Use
  Company Number: FR-REGENERON PHARMACEUTICALS, INC.-2015-14606

PATIENT

DRUGS (4)
  1. EYLEA [Suspect]
     Active Substance: AFLIBERCEPT
     Indication: RETINAL PIGMENT EPITHELIOPATHY
     Dosage: UNK
     Dates: start: 2013
  2. BETADINE [Concomitant]
     Active Substance: POVIDONE-IODINE
  3. EYLEA [Suspect]
     Active Substance: AFLIBERCEPT
     Indication: RETINAL NEOVASCULARISATION
     Dosage: UNK
     Route: 031
     Dates: start: 20151201, end: 20151201
  4. BETADINE OPHTHALMIC [Concomitant]

REACTIONS (9)
  - Intraocular pressure increased [Unknown]
  - Endophthalmitis [Not Recovered/Not Resolved]
  - Corneal oedema [Unknown]
  - Off label use [Unknown]
  - Flat anterior chamber of eye [Unknown]
  - Angle closure glaucoma [Not Recovered/Not Resolved]
  - Choroidal detachment [Unknown]
  - Cataract [Unknown]
  - Suspected counterfeit product [Unknown]

NARRATIVE: CASE EVENT DATE: 20151201
